FAERS Safety Report 19580166 (Version 1)
Quarter: 2021Q3

REPORT INFORMATION
  Report Type: Spontaneous
  Country: ES (occurrence: ES)
  Receive Date: 20210720
  Receipt Date: 20210720
  Transmission Date: 20211014
  Serious: Yes (Death, Other)
  Sender: FDA-Public Use
  Company Number: ES-BEH-2021133933

PATIENT
  Age: 59 Year
  Sex: Male

DRUGS (11)
  1. PROTAMINE [Concomitant]
     Active Substance: PROTAMINE
     Indication: HAEMOSTASIS
  2. RIASTAP [Suspect]
     Active Substance: FIBRINOGEN HUMAN
     Indication: HAEMOSTASIS
     Dosage: 2 GRAM
     Route: 065
  3. RED BLOOD CELLS [Concomitant]
     Active Substance: HUMAN RED BLOOD CELL
     Indication: HAEMOSTASIS
  4. RED BLOOD CELLS [Concomitant]
     Active Substance: HUMAN RED BLOOD CELL
     Indication: HAEMOSTASIS
  5. PLATELETS [Concomitant]
     Active Substance: HUMAN PLATELET, ALLOGENIC
     Indication: HAEMOSTASIS
  6. TRANEXAMIC ACID. [Concomitant]
     Active Substance: TRANEXAMIC ACID
     Indication: HAEMOSTASIS
  7. PROTAMINE [Concomitant]
     Active Substance: PROTAMINE
     Indication: HAEMOSTASIS
  8. CALCIUM CHLORIDE ANHYDROUS [Concomitant]
     Active Substance: CALCIUM CHLORIDE ANHYDROUS
  9. PLATELETS [Concomitant]
     Active Substance: HUMAN PLATELET, ALLOGENIC
     Indication: HAEMOSTASIS
  10. PLASMA [Concomitant]
     Active Substance: HUMAN PLASMA
  11. TRANEXAMIC ACID. [Concomitant]
     Active Substance: TRANEXAMIC ACID
     Indication: HAEMOSTASIS

REACTIONS (3)
  - Post procedural haemorrhage [Unknown]
  - Right ventricular failure [Fatal]
  - Multiple organ dysfunction syndrome [Fatal]
